FAERS Safety Report 16989635 (Version 1)
Quarter: 2019Q4

REPORT INFORMATION
  Report Type: Spontaneous
  Country: GB (occurrence: US)
  Receive Date: 20191029
  Receipt Date: 20191029
  Transmission Date: 20200122
  Serious: Yes (Hospitalization)
  Sender: FDA-Public Use
  Company Number: None

PATIENT
  Age: 66 Year
  Sex: Male
  Weight: 50 kg

DRUGS (1)
  1. CAPECITABINE. [Suspect]
     Active Substance: CAPECITABINE

REACTIONS (7)
  - Contusion [None]
  - Blister [None]
  - Pseudomonal skin infection [None]
  - Palmar-plantar erythrodysaesthesia syndrome [None]
  - Cellulitis [None]
  - Septic shock [None]
  - Diarrhoea [None]

NARRATIVE: CASE EVENT DATE: 20190628
